FAERS Safety Report 20334456 (Version 1)
Quarter: 2022Q1

REPORT INFORMATION
  Report Type: Spontaneous
  Country: US (occurrence: US)
  Receive Date: 20220114
  Receipt Date: 20220114
  Transmission Date: 20220424
  Serious: Yes (Other)
  Sender: FDA-Public Use
  Company Number: US-SA-SAC20220112000053

PATIENT
  Age: 59 Year
  Sex: Female

DRUGS (12)
  1. DUPIXENT [Suspect]
     Active Substance: DUPILUMAB
     Indication: Dermatitis atopic
     Dosage: 300 MG, QOW
     Route: 058
  2. CLOBETASOL [Concomitant]
     Active Substance: CLOBETASOL
     Dosage: OIN 0.05%,
  3. MUCINEX DM [Concomitant]
     Active Substance: DEXTROMETHORPHAN HYDROBROMIDE\GUAIFENESIN
     Dosage: TB1 30-600MG
  4. TACROLIMUS [Concomitant]
     Active Substance: TACROLIMUS
     Dosage: 0.1%,
  5. ALBUTEROL [Concomitant]
     Active Substance: ALBUTEROL
     Dosage: 4MG
  6. ESTRADIOL [Concomitant]
     Active Substance: ESTRADIOL
     Dosage: 10 MCG
  7. IBUPROFEN [Concomitant]
     Active Substance: IBUPROFEN
     Dosage: 800 MG
  8. NEXIUM I.V. [Concomitant]
     Active Substance: ESOMEPRAZOLE SODIUM
     Dosage: 20 MG
  9. OXYCODONE [Concomitant]
     Active Substance: OXYCODONE
     Dosage: 20MG
  10. PIROXICAM [Concomitant]
     Active Substance: PIROXICAM
     Dosage: 20MG
  11. SODIUM CHLORIDE [Concomitant]
     Active Substance: SODIUM CHLORIDE
     Dosage: 0.65%
  12. BETAMETHASONE [Concomitant]
     Active Substance: BETAMETHASONE

REACTIONS (7)
  - Haemorrhage [Not Recovered/Not Resolved]
  - Dry skin [Not Recovered/Not Resolved]
  - Depression [Not Recovered/Not Resolved]
  - Pruritus [Not Recovered/Not Resolved]
  - Sleep disorder [Not Recovered/Not Resolved]
  - Peripheral swelling [Not Recovered/Not Resolved]
  - Burning sensation [Not Recovered/Not Resolved]

NARRATIVE: CASE EVENT DATE: 20211001
